FAERS Safety Report 7042004-9 (Version None)
Quarter: 2010Q4

REPORT INFORMATION
  Report Type: 
  Country: None (occurrence: None)
  Receive Date: 20101007
  Receipt Date: 20100929
  Transmission Date: 20110411
  Serious: Yes (Other)
  Sender: FDA-Public Use
  Company Number: 2010MA003128

PATIENT
  Age: 73 Year
  Sex: Male

DRUGS (7)
  1. SPIRONOLACTONE [Suspect]
     Indication: HYPERTENSION
     Dosage: 25 MG;PO
     Route: 048
     Dates: start: 20100820, end: 20100829
  2. CANDESARTAN CILEXETIL [Concomitant]
  3. ATORVASTATIN [Concomitant]
  4. ATENOLOL [Concomitant]
  5. BENDROFLUMETHIAZIDE [Concomitant]
  6. LISINOPRIL [Concomitant]
  7. FELODIPINE [Concomitant]

REACTIONS (2)
  - BALANCE DISORDER [None]
  - PHOTOPHOBIA [None]
